FAERS Safety Report 9385669 (Version 1)
Quarter: 2013Q3

REPORT INFORMATION
  Report Type: Report from Study
  Country: ZW (occurrence: ZW)
  Receive Date: 20130705
  Receipt Date: 20130705
  Transmission Date: 20140515
  Serious: Yes (Hospitalization)
  Sender: FDA-Public Use
  Company Number: ZW-VIIV HEALTHCARE LIMITED-B0905339A

PATIENT
  Sex: Male

DRUGS (11)
  1. ABACAVIR [Suspect]
     Indication: HIV INFECTION
     Dates: start: 20100721
  2. ALUVIA [Suspect]
     Indication: PRODUCT USED FOR UNKNOWN INDICATION
     Dates: start: 20100721
  3. DIDANOSINE [Suspect]
     Indication: PRODUCT USED FOR UNKNOWN INDICATION
     Dates: start: 20100721
  4. RIFAMPICIN [Suspect]
     Indication: PRODUCT USED FOR UNKNOWN INDICATION
     Dates: start: 20100629, end: 20100817
  5. ISONIAZID [Suspect]
     Indication: PRODUCT USED FOR UNKNOWN INDICATION
     Dates: start: 20100629
  6. PYRAZINAMIDE [Suspect]
     Indication: PRODUCT USED FOR UNKNOWN INDICATION
     Dates: start: 20100629
  7. LAMIVUDINE-HIV [Suspect]
     Indication: HIV INFECTION
     Dates: start: 20100629, end: 20100721
  8. COTRIMOXAZOLE [Suspect]
     Indication: PRODUCT USED FOR UNKNOWN INDICATION
     Dates: start: 20050615
  9. STAVUDINE [Suspect]
     Indication: HIV INFECTION
     Dates: start: 20100629, end: 20100721
  10. EFAVIRENZ [Suspect]
     Indication: HIV INFECTION
     Dates: start: 20100629, end: 20100721
  11. ETHAMBUTOL [Suspect]
     Indication: PRODUCT USED FOR UNKNOWN INDICATION
     Dates: start: 20100629

REACTIONS (1)
  - Hepatitis acute [Recovered/Resolved]
